FAERS Safety Report 19440287 (Version 1)
Quarter: 2021Q2

REPORT INFORMATION
  Report Type: Report from Study
  Country: US (occurrence: US)
  Receive Date: 20210621
  Receipt Date: 20210621
  Transmission Date: 20210717
  Serious: Yes (Hospitalization)
  Sender: FDA-Public Use
  Company Number: US-ACADIA PHARMACEUTICALS INC.-ACA-2021-PIM-002000

PATIENT
  Age: 70 Year
  Sex: Female

DRUGS (31)
  1. BECLOMETHASONE DIPROPIONATE [BECLOMETASONE] [Concomitant]
     Active Substance: BECLOMETHASONE DIPROPIONATE
     Indication: ASTHMA
     Dosage: 80MCG/ACT I PUFF BID
     Dates: start: 20210415
  2. BENZTROPINE MESILATE [Concomitant]
     Active Substance: BENZTROPINE MESYLATE
     Dosage: 1MG 1 TABLET
     Route: 048
     Dates: start: 20210325
  3. POLYETHYLENE GLYCOL [MACROGOL] [Concomitant]
     Active Substance: POLYETHYLENE GLYCOLS
     Indication: CONSTIPATION
     Dosage: 17 GRAM ONE TIME A DAY
     Route: 048
     Dates: start: 20210514
  4. PROAIR HFA [Concomitant]
     Active Substance: ALBUTEROL SULFATE
     Indication: WHEEZING
     Dosage: 108 MCG/ACT 1 PUFF AS NEEDED EVERY 4 HOURS
     Dates: start: 20210324
  5. NUPLAZID [Suspect]
     Active Substance: PIMAVANSERIN TARTRATE
     Indication: PARKINSON^S DISEASE PSYCHOSIS
     Dosage: 34 MILLIGRAM, QD
     Route: 065
     Dates: start: 20210427
  6. GLUCAGEN HYPOKIT [Concomitant]
     Active Substance: GLUCAGON HYDROCHLORIDE
     Dosage: 1 MILLIGRAM
     Route: 058
     Dates: start: 20210325
  7. ROPINIROLE HCL [Concomitant]
     Active Substance: ROPINIROLE HYDROCHLORIDE
     Indication: PARKINSON^S DISEASE
     Dosage: 2 MILLIGRAM, QD
     Route: 048
     Dates: start: 20210325
  8. COLACE 2 IN 1 [Concomitant]
     Active Substance: DOCUSATE SODIUM\SENNOSIDES
     Indication: CONSTIPATION
     Dosage: 8.6?50MG 1 TABLET BID
     Route: 048
     Dates: start: 20210526
  9. NUPLAZID [Suspect]
     Active Substance: PIMAVANSERIN TARTRATE
     Indication: DELUSION
  10. LIDOCAINE. [Concomitant]
     Active Substance: LIDOCAINE
     Indication: PAIN
     Dosage: APPLY TO RIGHT SIDE OF ABDOMEN
     Route: 061
     Dates: start: 20210325
  11. NARCAN [Concomitant]
     Active Substance: NALOXONE HYDROCHLORIDE
     Indication: DRUG USE DISORDER
     Dosage: 4MG/0.1ML IN NOSTRIL AS NEEDED
     Dates: start: 20210325
  12. APAP [Concomitant]
     Active Substance: ACETAMINOPHEN
     Indication: PAIN
  13. DAPAGLIFLOZIN PROPANEDIOL MONOHYDRATE [Concomitant]
     Active Substance: DAPAGLIFLOZIN PROPANEDIOL
     Indication: TYPE 2 DIABETES MELLITUS
     Dosage: 5MG EVERY 12 HOURS
     Route: 048
     Dates: start: 20210325
  14. ZYRTEC [Concomitant]
     Active Substance: CETIRIZINE HYDROCHLORIDE
     Indication: SEASONAL ALLERGY
     Dosage: 10 MILLIGRAM ONE TIME A DAY
     Dates: start: 20210325
  15. NUPLAZID [Suspect]
     Active Substance: PIMAVANSERIN TARTRATE
     Indication: HALLUCINATION
  16. METOPROLOL SUCCINATE. [Concomitant]
     Active Substance: METOPROLOL SUCCINATE
     Indication: ESSENTIAL HYPERTENSION
     Dosage: 25MG 1 TABLET QD
     Route: 048
     Dates: start: 20210325
  17. SITAGLIPTIN/METFORMIN HYDROCHLORIDE [Concomitant]
     Active Substance: METFORMIN HYDROCHLORIDE\SITAGLIPTIN
     Indication: TYPE 2 DIABETES MELLITUS
     Dosage: 50?1000MG 1 TABLET ONE TIME A DAY
     Route: 048
     Dates: start: 20210325
  18. AZELASTINE HCL [Concomitant]
     Active Substance: AZELASTINE HYDROCHLORIDE
     Indication: SEASONAL ALLERGY
     Dosage: 1 SPRAY IN NOSTRILS BID
     Dates: start: 20210327
  19. BENZTROPINE MESILATE [Concomitant]
     Active Substance: BENZTROPINE MESYLATE
     Indication: PARKINSON^S DISEASE
     Dosage: 0.5MG 1 TABLET
     Route: 048
     Dates: start: 20210324
  20. LEVOTHYROXINE SODIUM. [Concomitant]
     Active Substance: LEVOTHYROXINE SODIUM
     Indication: HYPOTHYROIDISM
     Dosage: 112 MICROGRAM, QD
     Route: 048
     Dates: start: 20210325
  21. CARBIDOPA/LEVODOPA [Concomitant]
     Active Substance: CARBIDOPA\LEVODOPA
     Dosage: 25?100MG 2 TABLET BID
     Route: 048
     Dates: start: 20210325
  22. BISACODYL. [Concomitant]
     Active Substance: BISACODYL
     Indication: CONSTIPATION
     Dosage: 10MG AS NEEDED
     Dates: start: 20210325
  23. FLEET ENEMA [Concomitant]
     Active Substance: SODIUM PHOSPHATE, DIBASIC\SODIUM PHOSPHATE, MONOBASIC
     Indication: CONSTIPATION
     Dosage: 7?19GM/118ML AS NEEDED
     Route: 054
     Dates: start: 20210325
  24. MILK OF MAGNESIA [Concomitant]
     Active Substance: MAGNESIUM HYDROXIDE
     Indication: CONSTIPATION
     Dosage: 30 ML AS NEEDED
     Route: 048
     Dates: start: 20210325
  25. SEROQUEL [Concomitant]
     Active Substance: QUETIAPINE FUMARATE
     Indication: DELUSION
     Dosage: 25 MILLIGRAM, QD
     Route: 048
     Dates: start: 20210428, end: 20210609
  26. ZYRTEC [Concomitant]
     Active Substance: CETIRIZINE HYDROCHLORIDE
     Dosage: 10 MILLIGRAM ONE TIME A DAY
     Dates: start: 20210527
  27. ATORVASTATIN CALCIUM. [Concomitant]
     Active Substance: ATORVASTATIN CALCIUM
     Indication: TYPE IIA HYPERLIPIDAEMIA
     Dosage: 40 MILLIGRAM
     Route: 048
     Dates: start: 20210324
  28. CARBIDOPA/LEVODOPA [Concomitant]
     Active Substance: CARBIDOPA\LEVODOPA
     Indication: PARKINSON^S DISEASE
     Dosage: 25?100MG 1TABLET BID
     Route: 048
     Dates: start: 20210325
  29. PANTOPRAZOLE SODIUM. [Concomitant]
     Active Substance: PANTOPRAZOLE SODIUM
     Indication: GASTROOESOPHAGEAL REFLUX DISEASE
     Dosage: 40MG ONE TIME A DAY
     Route: 048
     Dates: start: 20210326
  30. SEROQUEL [Concomitant]
     Active Substance: QUETIAPINE FUMARATE
     Indication: PSYCHOTIC DISORDER DUE TO A GENERAL MEDICAL CONDITION
     Dosage: 50 MILLIGRAM, BID
     Route: 048
     Dates: start: 20210428
  31. APAP [Concomitant]
     Active Substance: ACETAMINOPHEN
     Indication: BODY TEMPERATURE INCREASED
     Dosage: 850 MILLIGRAM EVERY 6 HOURS AS NEEDED
     Route: 048
     Dates: start: 20210526

REACTIONS (1)
  - Paranoia [Recovered/Resolved]

NARRATIVE: CASE EVENT DATE: 20210514
